FAERS Safety Report 8275621-9 (Version None)
Quarter: 2012Q2

REPORT INFORMATION
  Report Type: 
  Country: None (occurrence: None)
  Receive Date: 20120412
  Receipt Date: 20120404
  Transmission Date: 20120825
  Serious: No
  Sender: FDA-Public Use
  Company Number: US-BIOGENIDEC-2010BI023619

PATIENT
  Age: 52 Year
  Sex: Male

DRUGS (2)
  1. TYSABRI [Suspect]
     Route: 042
     Dates: start: 20100622
  2. TYSABRI [Suspect]
     Indication: MULTIPLE SCLEROSIS
     Route: 042

REACTIONS (12)
  - BODY TEMPERATURE DECREASED [None]
  - DYSPNOEA [None]
  - MULTIPLE SCLEROSIS RELAPSE [None]
  - HYPOAESTHESIA [None]
  - DIABETES MELLITUS [None]
  - HYPERHIDROSIS [None]
  - FATIGUE [None]
  - MEMORY IMPAIRMENT [None]
  - ABASIA [None]
  - MIDDLE INSOMNIA [None]
  - DIARRHOEA [None]
  - LIVER FUNCTION TEST ABNORMAL [None]
